FAERS Safety Report 16329600 (Version 2)
Quarter: 2019Q2

REPORT INFORMATION
  Report Type: Report from Study
  Country: TW (occurrence: TW)
  Receive Date: 20190520
  Receipt Date: 20190611
  Transmission Date: 20190711
  Serious: Yes (Hospitalization, Other)
  Sender: FDA-Public Use
  Company Number: TW-BRISTOL-MYERS SQUIBB COMPANY-BMS-2019-045236

PATIENT
  Age: 79 Year
  Sex: Male

DRUGS (1)
  1. ABATACEPT [Suspect]
     Active Substance: ABATACEPT
     Indication: RHEUMATOID ARTHRITIS
     Dosage: 500 MILLIGRAM, QMO
     Route: 042
     Dates: start: 20150303, end: 20190409

REACTIONS (10)
  - Rheumatoid arthritis [Unknown]
  - Herpes zoster [Recovering/Resolving]
  - Diabetes mellitus [Unknown]
  - Peptic ulcer [Unknown]
  - Pneumonia [Unknown]
  - Insomnia [Unknown]
  - Interstitial lung disease [Unknown]
  - Sjogren^s syndrome [Unknown]
  - Hyponatraemia [Unknown]
  - Haematemesis [Unknown]

NARRATIVE: CASE EVENT DATE: 20190412
